FAERS Safety Report 9180935 (Version 1)
Quarter: 2013Q1

REPORT INFORMATION
  Report Type: Spontaneous
  Country: GB (occurrence: None)
  Receive Date: 20130320
  Receipt Date: 20130320
  Transmission Date: 20140127
  Serious: Yes (Other)
  Sender: FDA-Public Use
  Company Number: CL-478-2013

PATIENT
  Age: 34 Year
  Sex: Female

DRUGS (2)
  1. FLUCONAZOLE [Suspect]
     Indication: VULVOVAGINAL DISCOMFORT
  2. NAPROXEN [Concomitant]

REACTIONS (1)
  - Drug eruption [None]
